FAERS Safety Report 4816785-6 (Version None)
Quarter: 2005Q4

REPORT INFORMATION
  Report Type: 
  Country: None (occurrence: None)
  Receive Date: 20051028
  Receipt Date: 20051019
  Transmission Date: 20060501
  Serious: Yes (Hospitalization)
  Sender: FDA-Public Use
  Company Number: 05-NIP00101

PATIENT
  Age: 49 Year
  Sex: Male
  Weight: 81 kg

DRUGS (12)
  1. NIPENT [Suspect]
     Indication: CHRONIC LYMPHOCYTIC LEUKAEMIA
     Dosage: 4 MG/M2 INTRAVENOUS
     Route: 042
     Dates: start: 20050614, end: 20050825
  2. CYCLOPHOSPHAMIDE [Suspect]
     Indication: CHRONIC LYMPHOCYTIC LEUKAEMIA
     Dosage: 600 MG/M2, INTRAVENOUS
     Route: 042
     Dates: start: 20050614, end: 20050825
  3. RITUXIMAB [Suspect]
     Indication: CHRONIC LYMPHOCYTIC LEUKAEMIA
     Dosage: 375 MG/M2, INTRAVENOUS
     Route: 042
     Dates: start: 20050711, end: 20050825
  4. DECADRON [Concomitant]
  5. TYLENOL (CAPLET) [Concomitant]
  6. BENADRYL [Concomitant]
  7. PROTONIX [Concomitant]
  8. ACYCLOVIR [Concomitant]
  9. BACTRIM [Concomitant]
  10. PERCOCET [Concomitant]
  11. PROVIGIL [Concomitant]
  12. COLACE [Concomitant]

REACTIONS (3)
  - CYSTITIS [None]
  - LARYNGITIS [None]
  - MUCOSAL INFLAMMATION [None]
